FAERS Safety Report 8986471 (Version 3)
Quarter: 2013Q1

REPORT INFORMATION
  Report Type: Report from Study
  Country: FR (occurrence: FR)
  Receive Date: 20121226
  Receipt Date: 20130213
  Transmission Date: 20140127
  Serious: Yes (Hospitalization)
  Sender: FDA-Public Use
  Company Number: FR-ROCHE-1172536

PATIENT
  Sex: Female
  Weight: 80 kg

DRUGS (6)
  1. RITUXIMAB [Suspect]
     Indication: B-CELL LYMPHOMA
     Route: 042
     Dates: start: 20071019, end: 20080206
  2. RITUXIMAB [Suspect]
     Dosage: 2 CYCLE
     Route: 042
     Dates: start: 20080227, end: 20080320
  3. CYCLOPHOSPHAMIDE [Concomitant]
  4. HYDROXYDAUNORUBICIN [Concomitant]
  5. ONCOVIN [Concomitant]
  6. PREDNISOLONE [Concomitant]

REACTIONS (1)
  - Colon cancer metastatic [Unknown]
